FAERS Safety Report 24580279 (Version 3)
Quarter: 2025Q4

REPORT INFORMATION
  Report Type: Report from Study
  Country: US (occurrence: US)
  Receive Date: 20241105
  Receipt Date: 20251110
  Transmission Date: 20260118
  Serious: Yes (Other)
  Sender: TAKEDA
  Company Number: US-TAKEDA-2024TUS110599

PATIENT
  Age: 36 Year
  Sex: Male

DRUGS (4)
  1. ADVATE [Suspect]
     Active Substance: ANTIHEMOPHILIC FACTOR, HUMAN RECOMBINANT
     Indication: Product used for unknown indication
     Dosage: 4200 INTERNATIONAL UNIT
  2. ADVATE [Suspect]
     Active Substance: ANTIHEMOPHILIC FACTOR, HUMAN RECOMBINANT
     Dosage: 4094 INTERNATIONAL UNIT
  3. ADVATE [Suspect]
     Active Substance: ANTIHEMOPHILIC FACTOR, HUMAN RECOMBINANT
  4. HEMLIBRA [Suspect]
     Active Substance: EMICIZUMAB-KXWH
     Indication: Product used for unknown indication
     Dosage: UNK

REACTIONS (4)
  - Haemarthrosis [Unknown]
  - Haemorrhage [Unknown]
  - Expired product administered [Unknown]
  - Hand fracture [Unknown]

NARRATIVE: CASE EVENT DATE: 20241030
